FAERS Safety Report 11880697 (Version 1)
Quarter: 2015Q4

REPORT INFORMATION
  Report Type: Spontaneous
  Country: US (occurrence: US)
  Receive Date: 20151230
  Receipt Date: 20151230
  Transmission Date: 20160305
  Serious: No
  Sender: FDA-Public Use
  Company Number: US-ASTRAZENECA-2015SF28012

PATIENT
  Age: 490 Month
  Sex: Female
  Weight: 107 kg

DRUGS (7)
  1. NEXIUM [Suspect]
     Active Substance: ESOMEPRAZOLE MAGNESIUM
     Indication: GASTROOESOPHAGEAL REFLUX DISEASE
     Route: 048
     Dates: start: 2010
  2. SINGULAIR [Concomitant]
     Active Substance: MONTELUKAST SODIUM
     Indication: ASTHMA
     Dates: start: 201508
  3. SYNTHROID [Concomitant]
     Active Substance: LEVOTHYROXINE SODIUM
     Indication: THYROID DISORDER
     Dosage: 175, SYNTHROID MONDAY TO SAT DAILY AND EVERY OTHER SUNDAY
     Route: 048
     Dates: start: 20150617
  4. CELEBREX [Concomitant]
     Active Substance: CELECOXIB
     Indication: NERVE INJURY
     Route: 048
     Dates: start: 201401
  5. ALLEGRA [Concomitant]
     Active Substance: FEXOFENADINE HYDROCHLORIDE
     Indication: ASTHMA
     Dosage: DAILY, 60MG OR 180MG DEPENDING ON THE TIME OF THE YEAR
     Route: 048
  6. SYMBICORT [Suspect]
     Active Substance: BUDESONIDE\FORMOTEROL FUMARATE DIHYDRATE
     Indication: ASTHMA
     Dosage: 320 UG, TWO TIMES A DAY
     Route: 055
     Dates: start: 20151117, end: 20151211
  7. LISINOPRIL. [Suspect]
     Active Substance: LISINOPRIL
     Indication: BLOOD PRESSURE MEASUREMENT
     Route: 048
     Dates: start: 201401

REACTIONS (6)
  - Vomiting [Unknown]
  - Cough [Unknown]
  - Feeling abnormal [Unknown]
  - Upper respiratory tract infection [Unknown]
  - Productive cough [Unknown]
  - Therapeutic response unexpected [Unknown]

NARRATIVE: CASE EVENT DATE: 201512
